FAERS Safety Report 5025020-8 (Version None)
Quarter: 2006Q2

REPORT INFORMATION
  Report Type: 
  Country: None (occurrence: None)
  Receive Date: 20060608
  Receipt Date: 20060608
  Transmission Date: 20061013
  Serious: Yes (Hospitalization, Other)
  Sender: FDA-Public Use
  Company Number: None

PATIENT
  Age: 34 Year
  Sex: Female
  Weight: 49 kg

DRUGS (10)
  1. DILANTIN [Suspect]
     Indication: CONVULSION
  2. TOPAMAX [Concomitant]
  3. METOPROLOL TARTRATE [Concomitant]
  4. BENADRYL [Concomitant]
  5. FOLIC ACID [Concomitant]
  6. MAGNESIUM [Concomitant]
  7. PEPCID [Concomitant]
  8. AMOXICILLIN [Concomitant]
  9. PREDNISOLONE [Concomitant]
  10. THIAMINE [Concomitant]

REACTIONS (6)
  - BIOPSY SKIN ABNORMAL [None]
  - DEHYDRATION [None]
  - ERYTHEMA [None]
  - PRURITUS [None]
  - RASH [None]
  - SKIN EXFOLIATION [None]
